FAERS Safety Report 22770176 (Version 2)
Quarter: 2024Q3

REPORT INFORMATION
  Report Type: Spontaneous
  Country: US (occurrence: US)
  Receive Date: 20230801
  Receipt Date: 20240705
  Transmission Date: 20241017
  Serious: No
  Sender: CHATTEM
  Company Number: US-SANOFI-00339090

PATIENT
  Sex: Male

DRUGS (1)
  1. SELSUN BLUE MEDICATED [Suspect]
     Active Substance: SELENIUM SULFIDE
     Indication: Product used for unknown indication
     Route: 065

REACTIONS (3)
  - Liquid product physical issue [Unknown]
  - Product physical consistency issue [Unknown]
  - No adverse event [Unknown]
